FAERS Safety Report 19834474 (Version 1)
Quarter: 2021Q3

REPORT INFORMATION
  Report Type: Spontaneous
  Country: GB (occurrence: GB)
  Receive Date: 20210915
  Receipt Date: 20210915
  Transmission Date: 20211014
  Serious: Yes (Hospitalization, Other)
  Sender: FDA-Public Use
  Company Number: GB-LUPIN PHARMACEUTICALS INC.-2021-17226

PATIENT
  Age: 33 Year
  Sex: Male

DRUGS (16)
  1. OXYCODONE [Suspect]
     Active Substance: OXYCODONE
     Indication: ANALGESIC THERAPY
     Dosage: 120 MILLIGRAM (MODIFIED RELEASE)
     Route: 048
  2. OXYCODONE [Suspect]
     Active Substance: OXYCODONE
     Dosage: UNK UNK, PRN
     Route: 065
  3. OXYCODONE [Suspect]
     Active Substance: OXYCODONE
     Dosage: 35 MG, QD (IMMEDIATE RELEASE)
     Route: 048
  4. DEXAMETHASONE. [Concomitant]
     Active Substance: DEXAMETHASONE
     Indication: ANALGESIC THERAPY
     Dosage: 2 MILLIGRAM, QD
     Route: 042
  5. KETAMINE [Concomitant]
     Active Substance: KETAMINE
     Indication: HYPERAESTHESIA
     Dosage: 500 MILLIGRAM (BURST REGIMEN WHICH WAS TITRATED OVER 3 DAYS TO 500 MG/24 HOURS VIA CONTINUOUS SC INF
     Route: 058
  6. OXYCODONE [Suspect]
     Active Substance: OXYCODONE
     Dosage: 140 MILLIGRAM, PRN
     Route: 058
  7. CLONAZEPAM. [Concomitant]
     Active Substance: CLONAZEPAM
     Indication: PRODUCT USED FOR UNKNOWN INDICATION
     Dosage: 1 MILLIGRAM(NOCTE)
     Route: 065
  8. OXYCODONE [Suspect]
     Active Substance: OXYCODONE
     Dosage: 120 MILLIGRAM (VIA CONTINUOUS SC INFUSION)
     Route: 058
  9. METOCLOPRAMIDE. [Suspect]
     Active Substance: METOCLOPRAMIDE
     Indication: PRODUCT USED FOR UNKNOWN INDICATION
     Dosage: 10 MILLIGRAM, TID
     Route: 048
  10. PARACETAMOL [Concomitant]
     Active Substance: ACETAMINOPHEN
     Indication: INFLAMMATION
     Dosage: 1 GRAM, QID
     Route: 042
  11. OXYCODONE [Suspect]
     Active Substance: OXYCODONE
     Dosage: 40 MG, PRN IMMEDIATE RELEASE (BETWEEN 4 AND 6 TIMES DAILY)
     Route: 048
  12. OXYCODONE [Suspect]
     Active Substance: OXYCODONE
     Dosage: UNK (DOSE REDUCED)
     Route: 058
  13. OXYCODONE [Suspect]
     Active Substance: OXYCODONE
     Dosage: 80 MILLIGRAM
     Route: 065
  14. COCODAMOL [Suspect]
     Active Substance: ACETAMINOPHEN\CODEINE PHOSPHATE
     Indication: ANALGESIC THERAPY
     Dosage: UNK (30/500 MG FOUR TIMES A DAY)
     Route: 065
  15. CYCLIZINE [Concomitant]
     Active Substance: CYCLIZINE
     Indication: HYPERAESTHESIA
     Dosage: 150 MILLIGRAM (VIA CONTINUOUS SC INFUSION)
     Route: 058
  16. DEXAMETHASONE. [Concomitant]
     Active Substance: DEXAMETHASONE
     Indication: HYPERAESTHESIA
     Dosage: 8 MILLIGRAM
     Route: 042

REACTIONS (2)
  - Intestinal obstruction [Recovering/Resolving]
  - Hyperaesthesia [Recovered/Resolved]
